FAERS Safety Report 8822095 (Version 2)
Quarter: 2012Q4

REPORT INFORMATION
  Report Type: 
  Country: US (occurrence: US)
  Receive Date: 20121003
  Receipt Date: 20121116
  Transmission Date: 20130627
  Serious: Yes (Hospitalization)
  Sender: FDA-Public Use
  Company Number: US-BAYER-2012-100202

PATIENT
  Age: 28 Year
  Sex: Female
  Weight: 98.87 kg

DRUGS (7)
  1. YASMIN [Suspect]
     Dosage: UNK
     Dates: start: 20110918, end: 20111001
  2. ANTIMIGRAINE PREPARATIONS [Concomitant]
     Dosage: UNK
  3. ANTI-ASTHMATICS [Concomitant]
     Dosage: UNK
  4. HEART MEDICATION (NOS) [Concomitant]
     Dosage: UNK
  5. NSAID^S [Concomitant]
     Dosage: UNK
  6. POTASSION [Concomitant]
     Dosage: UNK
  7. POTASSIUM -SPARING DIURETICS [Concomitant]
     Dosage: UNK

REACTIONS (14)
  - Pulmonary embolism [None]
  - Cholelithiasis [None]
  - Convulsion [None]
  - Emotional distress [None]
  - Pain [None]
  - Injury [None]
  - General physical health deterioration [None]
  - Pain [None]
  - Anxiety [None]
  - Anhedonia [None]
  - Visual acuity reduced [None]
  - Joint swelling [None]
  - Dyspnoea [None]
  - Gait disturbance [None]
